FAERS Safety Report 9431797 (Version 4)
Quarter: 2014Q3

REPORT INFORMATION
  Report Type: Spontaneous
  Country: US (occurrence: None)
  Receive Date: 20130726
  Receipt Date: 20140916
  Transmission Date: 20150326
  Serious: Yes (Hospitalization, Other)
  Sender: FDA-Public Use
  Company Number: 2013US002005

PATIENT
  Age: 65 Year
  Sex: Female
  Weight: 90.7 kg

DRUGS (6)
  1. ICLUSIG [Suspect]
     Active Substance: PONATINIB
     Indication: CHRONIC MYELOID LEUKAEMIA
     Route: 048
     Dates: start: 20120901, end: 201308
  2. CELEXA [Concomitant]
     Active Substance: CITALOPRAM HYDROBROMIDE
  3. COUMADIN [Suspect]
     Active Substance: WARFARIN SODIUM
     Indication: PROPHYLAXIS
  4. LASIX [Concomitant]
     Active Substance: FUROSEMIDE
  5. NORVASC [Concomitant]
     Active Substance: AMLODIPINE BESYLATE
  6. METOPROLOL (METOPROLOL TARTRATE) [Concomitant]
     Active Substance: METOPROLOL TARTRATE

REACTIONS (9)
  - Stent placement [None]
  - Apparent death [None]
  - Cerebrovascular accident [None]
  - Gastrointestinal haemorrhage [None]
  - Carotid artery occlusion [None]
  - Coronary arterial stent insertion [None]
  - Haemorrhage [None]
  - Transient ischaemic attack [None]
  - Angina pectoris [None]

NARRATIVE: CASE EVENT DATE: 201304
